FAERS Safety Report 5780592-0 (Version None)
Quarter: 2008Q2

REPORT INFORMATION
  Report Type: 
  Country: None (occurrence: None)
  Receive Date: 20080620
  Receipt Date: 20080612
  Transmission Date: 20081010
  Serious: Yes (Life-Threatening, Hospitalization)
  Sender: FDA-Public Use
  Company Number: US-ASTRAZENECA-2008UW12384

PATIENT
  Age: 814 Month
  Sex: Female
  Weight: 110.5 kg

DRUGS (1)
  1. FASLODEX [Suspect]
     Indication: ENDOMETRIAL CANCER METASTATIC
     Route: 030
     Dates: start: 20070212

REACTIONS (2)
  - DYSPNOEA [None]
  - PULMONARY EMBOLISM [None]
